FAERS Safety Report 10196430 (Version 1)
Quarter: 2014Q2

REPORT INFORMATION
  Report Type: Report from Study
  Country: CA (occurrence: CA)
  Receive Date: 20140527
  Receipt Date: 20140527
  Transmission Date: 20141212
  Serious: Yes (Hospitalization, Other)
  Sender: FDA-Public Use
  Company Number: CA-JNJFOC-20140510470

PATIENT
  Age: 46 Year
  Sex: Male
  Weight: 103.8 kg

DRUGS (3)
  1. REMICADE [Suspect]
     Indication: COLITIS ULCERATIVE
     Route: 042
     Dates: start: 20131210
  2. ANABOLIC STEROIDS [Suspect]
     Indication: PRODUCT USED FOR UNKNOWN INDICATION
     Route: 065
     Dates: end: 2014
  3. AZATHIOPRINE [Concomitant]
     Route: 065

REACTIONS (2)
  - Hepatic failure [Recovering/Resolving]
  - Cholestasis [Recovering/Resolving]
